FAERS Safety Report 6150028-9 (Version None)
Quarter: 2009Q2

REPORT INFORMATION
  Report Type: 
  Country: None (occurrence: None)
  Receive Date: 20090409
  Receipt Date: 20090402
  Transmission Date: 20091009
  Serious: Yes (Hospitalization)
  Sender: FDA-Public Use
  Company Number: B0569142A

PATIENT
  Sex: Female
  Weight: 57 kg

DRUGS (1)
  1. DEROXAT [Suspect]
     Indication: PANIC DISORDER
     Dosage: 40MG PER DAY
     Route: 048
     Dates: start: 19980101, end: 20080922

REACTIONS (2)
  - GRAND MAL CONVULSION [None]
  - HYPONATRAEMIC SYNDROME [None]
